FAERS Safety Report 9404932 (Version 1)
Quarter: 2013Q3

REPORT INFORMATION
  Report Type: Spontaneous
  Country: US (occurrence: US)
  Receive Date: 20130717
  Receipt Date: 20130717
  Transmission Date: 20140515
  Serious: Yes (Other)
  Sender: FDA-Public Use
  Company Number: US-BRISTOL-MYERS SQUIBB COMPANY-18983528

PATIENT
  Sex: Male

DRUGS (1)
  1. YERVOY [Suspect]
     Dosage: THIRD INFUSION ON 27MAY2013

REACTIONS (3)
  - Malignant neoplasm progression [Unknown]
  - Platelet disorder [Unknown]
  - Blood disorder [Unknown]
